FAERS Safety Report 20532921 (Version 3)
Quarter: 2022Q2

REPORT INFORMATION
  Report Type: Spontaneous
  Country: CA (occurrence: CA)
  Receive Date: 20220301
  Receipt Date: 20220408
  Transmission Date: 20220721
  Serious: Yes (Other)
  Sender: FDA-Public Use
  Company Number: CA-PFIZER INC-2020510873

PATIENT
  Age: 10 Year
  Sex: Female

DRUGS (11)
  1. SOMATROPIN [Suspect]
     Active Substance: SOMATROPIN
     Indication: Turner^s syndrome
     Dosage: 2.0 MG, DAILY
     Route: 058
  2. SOMATROPIN [Suspect]
     Active Substance: SOMATROPIN
     Dosage: 1950 UG, 1X/DAY (NO EVENT)
     Route: 058
     Dates: start: 20180125
  3. SOMATROPIN [Suspect]
     Active Substance: SOMATROPIN
     Dosage: 1800 UG, EVERY 6 WEEKS
     Route: 058
     Dates: start: 2019
  4. SOMATROPIN [Suspect]
     Active Substance: SOMATROPIN
     Dosage: 1650 UG, EVERY 6 WEEKS
     Route: 058
     Dates: start: 2019, end: 202004
  5. SOMATROPIN [Suspect]
     Active Substance: SOMATROPIN
     Dosage: 1800 UG, EVERY 6 WEEKS
     Route: 058
     Dates: start: 202004, end: 2020
  6. SOMATROPIN [Suspect]
     Active Substance: SOMATROPIN
     Dosage: 1650 UG, EVERY 6 WEEKS (DISCONTINUED)
     Route: 058
     Dates: start: 2020, end: 202010
  7. SOMATROPIN [Suspect]
     Active Substance: SOMATROPIN
     Dosage: 1500 UG, EVERY 6 WEEKS
     Route: 058
     Dates: start: 202010
  8. CALCIUM [Concomitant]
     Active Substance: CALCIUM
     Dosage: 400 MG
  9. CHOLECALCIFEROL [Concomitant]
     Active Substance: CHOLECALCIFEROL
     Dosage: 3000 IU, DAILY
  10. ESTROGENS [Concomitant]
     Active Substance: ESTROGENS
     Dosage: UNK
  11. ESTROGENS [Concomitant]
     Active Substance: ESTROGENS
     Dosage: 25 MCG/24 HR PATCH

REACTIONS (8)
  - Hepatitis [Unknown]
  - Therapeutic product effect decreased [Unknown]
  - Insulin-like growth factor increased [Not Recovered/Not Resolved]
  - Snoring [Unknown]
  - Breath sounds abnormal [Unknown]
  - Nasal septum deviation [Unknown]
  - Vaginal discharge [Unknown]
  - Intercepted product prescribing error [Unknown]

NARRATIVE: CASE EVENT DATE: 20180125
